FAERS Safety Report 6097849-9 (Version None)
Quarter: 2009Q1

REPORT INFORMATION
  Report Type: 
  Country: None (occurrence: None)
  Receive Date: 20090227
  Receipt Date: 20090217
  Transmission Date: 20090719
  Serious: Yes (Other)
  Sender: FDA-Public Use
  Company Number: UY-PFIZER INC-2008092341

PATIENT

DRUGS (3)
  1. CHAMPIX [Suspect]
     Dosage: 1 MG, 1X/DAY
     Route: 048
     Dates: end: 20081205
  2. ENALAPRIL [Concomitant]
     Route: 048
     Dates: start: 20040101
  3. ATORVASTATIN [Concomitant]
     Route: 048
     Dates: start: 20040101

REACTIONS (5)
  - ABDOMINAL DISCOMFORT [None]
  - ANXIETY [None]
  - DRUG HYPERSENSITIVITY [None]
  - RENAL DISORDER [None]
  - SUFFOCATION FEELING [None]
